FAERS Safety Report 7664453-8 (Version None)
Quarter: 2011Q3

REPORT INFORMATION
  Report Type: 
  Country: None (occurrence: None)
  Receive Date: 20110806
  Receipt Date: 20110219
  Transmission Date: 20111222
  Serious: No
  Sender: FDA-Public Use
  Company Number: US-ABBOTT-11P-163-0706202-00

PATIENT
  Sex: Female

DRUGS (2)
  1. ZOCOR [Concomitant]
     Indication: PRODUCT USED FOR UNKNOWN INDICATION
  2. NIASPAN [Suspect]
     Indication: PRODUCT USED FOR UNKNOWN INDICATION
     Dates: start: 20110218

REACTIONS (5)
  - CHEST DISCOMFORT [None]
  - FEELING HOT [None]
  - DYSPHONIA [None]
  - WHEEZING [None]
  - FLUSHING [None]
